FAERS Safety Report 9605110 (Version 1)
Quarter: 2013Q4

REPORT INFORMATION
  Report Type: Spontaneous
  Country: GB (occurrence: GB)
  Receive Date: 20131008
  Receipt Date: 20131008
  Transmission Date: 20140711
  Serious: Yes (Life-Threatening)
  Sender: FDA-Public Use
  Company Number: GB-PFIZER INC-2013284554

PATIENT
  Age: 58 Year
  Sex: Male

DRUGS (1)
  1. INSPRA [Suspect]
     Indication: MYOCARDIAL ISCHAEMIA
     Dosage: 50 MG, UNK
     Route: 048

REACTIONS (1)
  - Transient ischaemic attack [Recovering/Resolving]
